FAERS Safety Report 10232185 (Version 1)
Quarter: 2014Q2

REPORT INFORMATION
  Report Type: Spontaneous
  Country: US (occurrence: US)
  Receive Date: 20140612
  Receipt Date: 20140612
  Transmission Date: 20141212
  Serious: No
  Sender: FDA-Public Use
  Company Number: US-BIOGENIDEC-2014BI051539

PATIENT
  Sex: 0

DRUGS (3)
  1. TECFIDERA [Suspect]
     Indication: MULTIPLE SCLEROSIS
  2. GAS-X [Concomitant]
     Indication: PROPHYLAXIS
  3. BEAN-O [Concomitant]
     Indication: PROPHYLAXIS

REACTIONS (1)
  - Abdominal distension [Not Recovered/Not Resolved]
